FAERS Safety Report 5598806-9 (Version None)
Quarter: 2008Q1

REPORT INFORMATION
  Report Type: 
  Country: None (occurrence: None)
  Receive Date: 20080122
  Receipt Date: 20080109
  Transmission Date: 20080703
  Serious: Yes (Hospitalization, Other)
  Sender: FDA-Public Use
  Company Number: US-AMGEN-US260225

PATIENT
  Sex: Male
  Weight: 77.2 kg

DRUGS (9)
  1. PROCRIT [Suspect]
     Indication: ANAEMIA
     Route: 058
     Dates: start: 20070401, end: 20071001
  2. ATENOLOL [Concomitant]
     Route: 048
     Dates: start: 20040101
  3. TERAZOSIN HCL [Concomitant]
     Route: 048
     Dates: start: 20040101
  4. HYDROCHLOROTHIAZIDE [Concomitant]
     Route: 048
     Dates: start: 20040101
  5. COZAAR [Concomitant]
     Route: 048
     Dates: start: 20040101
  6. ASPIRIN [Concomitant]
     Route: 048
     Dates: start: 20071201
  7. SIMVASTATIN [Concomitant]
     Route: 048
     Dates: start: 20071201
  8. METHOTREXATE [Concomitant]
     Dates: start: 20040101
  9. FOSAMAX [Concomitant]
     Dates: start: 20071001

REACTIONS (2)
  - BONE MARROW FAILURE [None]
  - CARDIAC FAILURE CONGESTIVE [None]
